FAERS Safety Report 6765033-9 (Version None)
Quarter: 2010Q2

REPORT INFORMATION
  Report Type: 
  Country: None (occurrence: None)
  Receive Date: 20100610
  Receipt Date: 20100609
  Transmission Date: 20101027
  Serious: Yes (Hospitalization)
  Sender: FDA-Public Use
  Company Number: FR-MERCK-0903FRA00074

PATIENT
  Age: 86 Year
  Sex: Female

DRUGS (5)
  1. COZAAR [Suspect]
     Route: 048
  2. ACETAMINOPHEN AND CAFFEINE AND OPIUM [Suspect]
     Route: 048
  3. DONEPEZIL HYDROCHLORIDE [Suspect]
     Route: 048
  4. MILNACIPRAN HYDROCHLORIDE [Concomitant]
     Route: 065
  5. GINKGO [Concomitant]
     Route: 048

REACTIONS (3)
  - FALL [None]
  - HUMERUS FRACTURE [None]
  - MALAISE [None]
